FAERS Safety Report 14033091 (Version 8)
Quarter: 2019Q2

REPORT INFORMATION
  Report Type: Spontaneous
  Country: US (occurrence: US)
  Receive Date: 20171002
  Receipt Date: 20190401
  Transmission Date: 20190711
  Serious: Yes (Hospitalization, Other)
  Sender: FDA-Public Use
  Company Number: US-PFIZER INC-2017422132

PATIENT
  Age: 76 Year
  Sex: Female

DRUGS (5)
  1. LYRICA [Suspect]
     Active Substance: PREGABALIN
     Indication: AUTOIMMUNE HEPATITIS
     Dosage: 300 MG, 1X/DAY (300MG/DAY)
  2. ARTHROTEC [Suspect]
     Active Substance: DICLOFENAC SODIUM\MISOPROSTOL
     Indication: COSTOCHONDRITIS
     Dosage: UNK, 2X/DAY (2/DAY)
  3. HYDROCODONE [Concomitant]
     Active Substance: HYDROCODONE
     Indication: ANALGESIC THERAPY
     Dosage: UNK
  4. LYRICA [Suspect]
     Active Substance: PREGABALIN
     Indication: TRIGEMINAL NEURALGIA
     Dosage: 150 MG, 2X/DAY
  5. LYRICA [Suspect]
     Active Substance: PREGABALIN
     Indication: NEURALGIA
     Dosage: 150 MG, 2X/DAY
     Route: 048
     Dates: start: 201203

REACTIONS (11)
  - Autoimmune thyroiditis [Recovered/Resolved]
  - Scoliosis [Not Recovered/Not Resolved]
  - Chest discomfort [Recovered/Resolved]
  - Spinal cord injury [Recovered/Resolved]
  - Choking [Recovered/Resolved]
  - Trigeminal nerve disorder [Recovered/Resolved]
  - Condition aggravated [Recovered/Resolved]
  - Cerebrospinal fluid leakage [Recovered/Resolved]
  - Memory impairment [Recovered/Resolved]
  - Trismus [Recovered/Resolved]
  - Drug dependence [Recovered/Resolved]
